FAERS Safety Report 5875188-6 (Version None)
Quarter: 2008Q3

REPORT INFORMATION
  Report Type: 
  Country: None (occurrence: None)
  Receive Date: 20080909
  Receipt Date: 20080630
  Transmission Date: 20090109
  Serious: No
  Sender: FDA-Public Use
  Company Number: A0735384A

PATIENT
  Age: 44 Year
  Sex: Male

DRUGS (6)
  1. ALBENZA [Suspect]
     Dosage: 2TAB TWICE PER DAY
     Route: 048
     Dates: start: 20080616
  2. MEBENDAZOLE [Concomitant]
  3. OMEPRAZOLE [Concomitant]
  4. BUPROPION HCL [Concomitant]
  5. SIMVASTATIN [Concomitant]
  6. NASONEX [Concomitant]

REACTIONS (1)
  - DRUG INEFFECTIVE [None]
